FAERS Safety Report 19707712 (Version 1)
Quarter: 2021Q3

REPORT INFORMATION
  Report Type: Other
  Country: JP (occurrence: JP)
  Receive Date: 20210817
  Receipt Date: 20210817
  Transmission Date: 20211014
  Serious: Yes (Death, Other)
  Sender: FDA-Public Use
  Company Number: JP-ROCHE-2271909

PATIENT
  Age: 59 Year
  Sex: Female
  Weight: 52 kg

DRUGS (5)
  1. RITUXIMAB. [Suspect]
     Active Substance: RITUXIMAB
     Indication: IMMUNE TOLERANCE INDUCTION
     Route: 041
     Dates: start: 20160524, end: 20160524
  2. BASILIXIMAB [Concomitant]
     Active Substance: BASILIXIMAB
     Route: 048
     Dates: start: 20160524, end: 20160524
  3. MYCOPHENOLATE MOFETIL. [Concomitant]
     Active Substance: MYCOPHENOLATE MOFETIL
     Route: 048
     Dates: start: 20160524
  4. NEORESTAR [Concomitant]
     Active Substance: CHLORPHENIRAMINE MALEATE
     Route: 042
     Dates: start: 20160524, end: 20160524
  5. BASILIXIMAB [Concomitant]
     Active Substance: BASILIXIMAB
     Route: 048
     Dates: start: 20160528, end: 20160528

REACTIONS (7)
  - Off label use [Unknown]
  - Pyrexia [Not Recovered/Not Resolved]
  - White blood cell count decreased [Recovering/Resolving]
  - Urinary tract infection [Recovering/Resolving]
  - Sepsis [Fatal]
  - Platelet count decreased [Recovering/Resolving]
  - Neutrophil count decreased [Recovering/Resolving]

NARRATIVE: CASE EVENT DATE: 20160524
